FAERS Safety Report 15955596 (Version 2)
Quarter: 2019Q1

REPORT INFORMATION
  Report Type: Spontaneous
  Country: CA (occurrence: CA)
  Receive Date: 20190213
  Receipt Date: 20190306
  Transmission Date: 20190417
  Serious: Yes (Hospitalization, Other)
  Sender: FDA-Public Use
  Company Number: PHHY2019CA029993

PATIENT
  Age: 77 Year
  Sex: Male

DRUGS (1)
  1. ENTRESTO [Suspect]
     Active Substance: SACUBITRIL\VALSARTAN
     Indication: CARDIAC FAILURE
     Dosage: UNK
     Route: 065
     Dates: start: 201702

REACTIONS (8)
  - Pulmonary fibrosis [Not Recovered/Not Resolved]
  - Pleural effusion [Unknown]
  - Hypotension [Unknown]
  - Dyspnoea [Unknown]
  - Malaise [Unknown]
  - Angiopathy [Not Recovered/Not Resolved]
  - Cyanosis [Unknown]
  - Fatigue [Unknown]
